FAERS Safety Report 9595658 (Version 1)
Quarter: 2013Q4

REPORT INFORMATION
  Report Type: Spontaneous
  Country: CH (occurrence: CH)
  Receive Date: 20131004
  Receipt Date: 20131004
  Transmission Date: 20140711
  Serious: Yes (Hospitalization, Other)
  Sender: FDA-Public Use
  Company Number: CH-009507513-1310CHE002182

PATIENT
  Age: 60 Year
  Sex: Female

DRUGS (1)
  1. REMERON [Suspect]
     Dosage: 13 DF AT ONCE
     Route: 048
     Dates: start: 20130814, end: 20130814

REACTIONS (4)
  - Rhabdomyolysis [Unknown]
  - Suicide attempt [Recovered/Resolved]
  - Extrapyramidal disorder [Unknown]
  - White blood cell count increased [Unknown]
